FAERS Safety Report 5787785-7 (Version None)
Quarter: 2008Q2

REPORT INFORMATION
  Report Type: 
  Country: None (occurrence: None)
  Receive Date: 20080624
  Receipt Date: 20080624
  Transmission Date: 20081010
  Serious: Yes (Hospitalization)
  Sender: FDA-Public Use
  Company Number: None

PATIENT
  Age: 38 Year
  Sex: Female
  Weight: 74.8435 kg

DRUGS (2)
  1. NEURONTIN [Suspect]
     Indication: MENTAL DISORDER
     Dates: start: 20080516, end: 20080622
  2. STRATTERA [Suspect]
     Indication: MENTAL DISORDER
     Dates: start: 20060101, end: 20080621

REACTIONS (1)
  - SUICIDE ATTEMPT [None]
